FAERS Safety Report 10670911 (Version 1)
Quarter: 2014Q4

REPORT INFORMATION
  Report Type: Spontaneous
  Country: ES (occurrence: None)
  Receive Date: 20141219
  Receipt Date: 20141219
  Transmission Date: 20150529
  Serious: Yes (Life-Threatening)
  Sender: FDA-Public Use
  Company Number: FK201406199

PATIENT
  Age: 70 Year
  Sex: Male

DRUGS (3)
  1. PROPOFOL 1% FRESNIUS (PROPOFOL) (PROPOFOL) [Suspect]
     Active Substance: PROPOFOL
     Indication: INDUCTION OF ANAESTHESIA
     Dosage: (NOT OTHERWISE SPECIFIED)
     Route: 042
     Dates: start: 20140509, end: 20140509
  2. SUXMETHONIUM (SUXAMETHONIUM) [Concomitant]
  3. METRONIDAZOLE (METRONIDAZOLE) [Concomitant]
     Active Substance: METRONIDAZOLE

REACTIONS (3)
  - Drug hypersensitivity [None]
  - Anaphylactic shock [None]
  - Bronchospasm [None]

NARRATIVE: CASE EVENT DATE: 20140509
